FAERS Safety Report 5066807-5 (Version None)
Quarter: 2006Q3

REPORT INFORMATION
  Report Type: 
  Country: None (occurrence: None)
  Receive Date: 20060711
  Receipt Date: 20050708
  Transmission Date: 20061208
  Serious: Yes (Other)
  Sender: FDA-Public Use
  Company Number: 2005061814

PATIENT
  Age: 45 Year
  Sex: Female
  Weight: 83.0083 kg

DRUGS (4)
  1. ACCUPRIL [Suspect]
     Indication: HYPERTENSION
     Dosage: 20 MG (20 MG, ONCE A DAY), ORAL
     Route: 048
     Dates: start: 20050101
  2. QUINAPRIL HCL [Suspect]
     Indication: HYPERTENSION
     Dosage: 20 MG (20 MG, ONCE A DAY), ORAL
     Route: 048
     Dates: start: 20050101
  3. ALLEGRA [Concomitant]
  4. COENZYME Q10 [Concomitant]

REACTIONS (2)
  - BLOOD PRESSURE FLUCTUATION [None]
  - BLOOD PRESSURE INADEQUATELY CONTROLLED [None]
